FAERS Safety Report 7957079-X (Version None)
Quarter: 2011Q4

REPORT INFORMATION
  Report Type: 
  Country: None (occurrence: None)
  Receive Date: 20111205
  Receipt Date: 20111125
  Transmission Date: 20120403
  Serious: Yes (Death)
  Sender: FDA-Public Use
  Company Number: DE-ROCHE-1017082

PATIENT
  Sex: Male
  Weight: 101 kg

DRUGS (7)
  1. CARBOPLATIN [Suspect]
     Indication: LUNG NEOPLASM MALIGNANT
     Route: 042
     Dates: start: 20111125
  2. AVASTIN [Suspect]
     Indication: LUNG NEOPLASM MALIGNANT
     Route: 042
     Dates: start: 20111025
  3. PACLITAXEL [Suspect]
     Indication: LUNG NEOPLASM MALIGNANT
     Route: 042
     Dates: start: 20111025
  4. GRANISETRON [Concomitant]
     Route: 042
     Dates: start: 20111025
  5. DEXAMETHASONE [Concomitant]
     Route: 042
     Dates: start: 20111025
  6. FENISTIL [Concomitant]
     Route: 042
     Dates: start: 20111025
  7. RANITIDINE HCL [Concomitant]
     Route: 042
     Dates: start: 20111025

REACTIONS (1)
  - HEADACHE [None]
